FAERS Safety Report 19067295 (Version 1)
Quarter: 2021Q1

REPORT INFORMATION
  Report Type: Spontaneous
  Country: ES (occurrence: ES)
  Receive Date: 20210329
  Receipt Date: 20210329
  Transmission Date: 20210420
  Serious: Yes (Other)
  Sender: FDA-Public Use
  Company Number: ES-ROCHE-2799155

PATIENT
  Age: 5 Decade
  Sex: Female

DRUGS (2)
  1. OMALIZUMAB. [Suspect]
     Active Substance: OMALIZUMAB
     Indication: ANGIOEDEMA
     Route: 065
  2. BILAXTEN [Suspect]
     Active Substance: BILASTINE
     Indication: ANGIOEDEMA
     Dosage: 60 MG, QD (20 MG/TID)
     Route: 048

REACTIONS (2)
  - Prescribed overdose [Unknown]
  - Deafness neurosensory [Unknown]
